FAERS Safety Report 9298276 (Version 1)
Quarter: 2013Q1

REPORT INFORMATION
  Report Type: Spontaneous
  Country: US (occurrence: None)
  Receive Date: 20121227
  Receipt Date: 20121227
  Transmission Date: 20140127
  Serious: No
  Sender: FDA-Public Use
  Company Number: PHEH2012US015345

PATIENT
  Age: 51 Year
  Sex: Male
  Weight: 147 kg

DRUGS (17)
  1. AFINITOR [Suspect]
     Route: 048
     Dates: start: 20120711, end: 20121008
  2. BALSALAZIDE (BALSALAZIDE) [Concomitant]
  3. TRAZODONE (TRAZODONE) [Concomitant]
  4. LISINOPRIL (LISINOPRIL) [Concomitant]
  5. CARVEDILOL (CARVEDILOL) [Concomitant]
  6. ACYCLOVIR (ACICLOVIR) [Concomitant]
  7. ESCITALOPRAM (ESCITALOPRAM) [Concomitant]
  8. ATORVASTATIN (ATORVASTATIN) [Concomitant]
  9. ZYRTEC (CETIRIZINE HYDROCHLORIDE) [Concomitant]
  10. VIAGRA (SILDENAFIL CITRATE) TABLET [Concomitant]
  11. TRIAMOINOLONE CREAM [Concomitant]
  12. NITROSTAT (GLYCERYL TRINITRATE) TABLET [Concomitant]
  13. ASPIRIN (ACETYLSALICYLIC ACID) [Concomitant]
  14. ATIVAN (LORAZEPAM) [Concomitant]
  15. CALTRATE (CALCIUM CARBONATE) [Concomitant]
  16. CENTRUM (MINERALS NOS, VITAMINS NOS) [Concomitant]
  17. CLOBERASOL [Concomitant]

REACTIONS (7)
  - Abdominal discomfort [None]
  - Influenza [None]
  - Chills [None]
  - Abdominal pain upper [None]
  - Hot flush [None]
  - Nausea [None]
  - Rash [None]
